FAERS Safety Report 11982388 (Version 1)
Quarter: 2016Q1

REPORT INFORMATION
  Report Type: Spontaneous
  Country: US (occurrence: None)
  Receive Date: 20160129
  Receipt Date: 20160129
  Transmission Date: 20160526
  Serious: Yes (Life-Threatening)
  Sender: FDA-Public Use
  Company Number: None

PATIENT
  Age: 78 Year
  Sex: Male
  Weight: 72.58 kg

DRUGS (8)
  1. SIMVASTATIN. [Concomitant]
     Active Substance: SIMVASTATIN
  2. ALFUZOSIN 10 MG MYLAN [Suspect]
     Active Substance: ALFUZOSIN
     Indication: URINARY RETENTION
     Route: 048
     Dates: start: 20150701
  3. FINESTERIDE [Concomitant]
     Active Substance: FINASTERIDE
  4. ASPIRIN. [Concomitant]
     Active Substance: ASPIRIN
  5. GEMZAR [Concomitant]
     Active Substance: GEMCITABINE HYDROCHLORIDE
  6. SYNTHROID [Concomitant]
     Active Substance: LEVOTHYROXINE SODIUM
  7. CARBOPLATIN. [Concomitant]
     Active Substance: CARBOPLATIN
  8. TAMSULOSIN 0.4MG [Suspect]
     Active Substance: TAMSULOSIN
     Indication: URINE FLOW DECREASED
     Route: 048

REACTIONS (3)
  - Chest discomfort [None]
  - Anaemia [None]
  - Heart rate increased [None]

NARRATIVE: CASE EVENT DATE: 20150601
